FAERS Safety Report 20872837 (Version 1)
Quarter: 2022Q2

REPORT INFORMATION
  Report Type: Report from Study
  Country: ZA (occurrence: None)
  Receive Date: 20220525
  Receipt Date: 20220525
  Transmission Date: 20220721
  Serious: Yes (Death)
  Sender: FDA-Public Use
  Company Number: 2022A194091

PATIENT
  Sex: Female

DRUGS (2)
  1. BUDESONIDE\FORMOTEROL [Suspect]
     Active Substance: BUDESONIDE\FORMOTEROL
     Dosage: 60 UG/INHAL, UNKNOWN, 60 DOSE. UNKNOWN
     Route: 055
  2. DYNA-LEVETIRACETAM [Concomitant]
     Dosage: 500.0MG UNKNOWN
     Route: 065

REACTIONS (1)
  - Death [Fatal]
